FAERS Safety Report 12924199 (Version 6)
Quarter: 2017Q3

REPORT INFORMATION
  Report Type: Spontaneous
  Country: JP (occurrence: JP)
  Receive Date: 20161109
  Receipt Date: 20170731
  Transmission Date: 20171127
  Serious: Yes (Other)
  Sender: FDA-Public Use
  Company Number: PHJP2016JP031003

PATIENT
  Age: 30 Year
  Sex: Female

DRUGS (2)
  1. IMUSERA [Suspect]
     Active Substance: FINGOLIMOD HYDROCHLORIDE
     Indication: MULTIPLE SCLEROSIS
     Dosage: UNK
     Route: 048
  2. GLATIRAMER [Suspect]
     Active Substance: GLATIRAMER
     Indication: MULTIPLE SCLEROSIS RELAPSE
     Dosage: UNK
     Route: 065

REACTIONS (4)
  - Muscular weakness [Recovering/Resolving]
  - Maternal exposure during pregnancy [Unknown]
  - Multiple sclerosis relapse [Recovering/Resolving]
  - Premature delivery [Unknown]
